FAERS Safety Report 8394611-9 (Version None)
Quarter: 2012Q2

REPORT INFORMATION
  Report Type: 
  Country: None (occurrence: None)
  Receive Date: 20120525
  Receipt Date: 20120525
  Transmission Date: 20120825
  Serious: Yes (Life-Threatening, Hospitalization, Disabling)
  Sender: FDA-Public Use
  Company Number: None

PATIENT
  Age: 37 Year
  Sex: Female
  Weight: 117.9352 kg

DRUGS (2)
  1. CYMBALTA [Suspect]
     Indication: DEPRESSION
     Dosage: 60 MG 1X PER DAY PO
     Route: 048
     Dates: start: 20110725, end: 20120315
  2. CYMBALTA [Suspect]
     Indication: PAIN
     Dosage: 60 MG 1X PER DAY PO
     Route: 048
     Dates: start: 20110725, end: 20120315

REACTIONS (10)
  - DRUG WITHDRAWAL SYNDROME [None]
  - SUICIDAL IDEATION [None]
  - DEPRESSION [None]
  - CONDITION AGGRAVATED [None]
  - PERSONALITY CHANGE [None]
  - ALANINE AMINOTRANSFERASE INCREASED [None]
  - ANGER [None]
  - APATHY [None]
  - ANXIETY [None]
  - GASTRIC DISORDER [None]
